FAERS Safety Report 18899461 (Version 1)
Quarter: 2021Q1

REPORT INFORMATION
  Report Type: Spontaneous
  Country: US (occurrence: US)
  Receive Date: 20210216
  Receipt Date: 20210216
  Transmission Date: 20210420
  Serious: Yes (Other)
  Sender: FDA-Public Use
  Company Number: US-PFIZER INC-2021131355

PATIENT
  Age: 51 Year
  Sex: Male

DRUGS (1)
  1. ZYVOX [Suspect]
     Active Substance: LINEZOLID
     Dosage: 600 MG (TAKE 1 TABLET (600MG) BY MOUTH Q12 QUANTITY 5)
     Route: 048

REACTIONS (1)
  - Bacteraemia [Unknown]
